FAERS Safety Report 26115369 (Version 1)
Quarter: 2025Q4

REPORT INFORMATION
  Report Type: Spontaneous
  Country: US (occurrence: US)
  Receive Date: 20251203
  Receipt Date: 20251203
  Transmission Date: 20260118
  Serious: Yes (Other)
  Sender: LEADING PHARMA
  Company Number: US-LEADINGPHARMA-US-2025LEASPO00226

PATIENT
  Sex: Male

DRUGS (3)
  1. LEUCOVORIN CALCIUM [Suspect]
     Active Substance: LEUCOVORIN CALCIUM
     Indication: Product used for unknown indication
     Dosage: ABOUT 05 WEEKS AGO
     Route: 065
     Dates: start: 202510
  2. VITAMIN B12 [Concomitant]
     Active Substance: CYANOCOBALAMIN
     Indication: Product used for unknown indication
     Route: 065
  3. DHA OMEGA [Concomitant]
     Indication: Product used for unknown indication
     Route: 065

REACTIONS (1)
  - Parasitic gastroenteritis [Unknown]

NARRATIVE: CASE EVENT DATE: 20250101
